FAERS Safety Report 10010587 (Version 2)
Quarter: 2014Q2

REPORT INFORMATION
  Report Type: Spontaneous
  Country: ES (occurrence: ES)
  Receive Date: 20140314
  Receipt Date: 20140410
  Transmission Date: 20141212
  Serious: Yes (Disabling)
  Sender: FDA-Public Use
  Company Number: ES-009507513-1403ESP003002

PATIENT
  Age: 64 Year
  Sex: Female

DRUGS (6)
  1. FOSAVANCE [Suspect]
     Indication: OSTEOPOROSIS
     Dosage: UNK
     Route: 048
     Dates: start: 20140301, end: 20140301
  2. FOSAVANCE [Suspect]
     Indication: BONE DECALCIFICATION
  3. LANSOPRAZOLE [Concomitant]
  4. ATORVASTATIN CALCIUM [Concomitant]
  5. SERC (BETAHISTINE HYDROCHLORIDE) [Concomitant]
  6. ESCITALOPRAM [Concomitant]

REACTIONS (5)
  - Movement disorder [Recovered/Resolved]
  - Chest pain [Recovered/Resolved]
  - Neck pain [Recovered/Resolved]
  - Myalgia [Recovered/Resolved]
  - Pain in extremity [Recovered/Resolved]
